FAERS Safety Report 5515848-X (Version None)
Quarter: 2007Q4

REPORT INFORMATION
  Report Type: 
  Country: None (occurrence: None)
  Receive Date: 20071109
  Receipt Date: 20071029
  Transmission Date: 20080405
  Serious: Yes (Disabling)
  Sender: FDA-Public Use
  Company Number: GXKR2007GB09366

PATIENT
  Age: 12 Year
  Sex: Male

DRUGS (1)
  1. CLONIDINE                                                      (CLONID [Suspect]
     Indication: TOURETTE'S DISORDER
     Dosage: ORAL
     Route: 048
     Dates: start: 20070712, end: 20070923

REACTIONS (2)
  - ANXIETY [None]
  - DEPRESSION [None]
